FAERS Safety Report 21110365 (Version 1)
Quarter: 2022Q3

REPORT INFORMATION
  Report Type: Spontaneous
  Country: CA (occurrence: CA)
  Receive Date: 20220721
  Receipt Date: 20220721
  Transmission Date: 20221027
  Serious: Yes (Other)
  Sender: FDA-Public Use
  Company Number: CA-BAXTER-2022BAX015064

PATIENT
  Age: 42 Year

DRUGS (6)
  1. CYCLOPHOSPHAMIDE [Suspect]
     Active Substance: CYCLOPHOSPHAMIDE
     Indication: Breast cancer
     Dosage: UNK (ROUTE: INTRAVENOUS (NOT OTHERWISE SPECIFIED); DOSAGE FORM: NOT SPECIFIED)
     Route: 042
  2. DOXORUBICIN HYDROCHLORIDE [Suspect]
     Active Substance: DOXORUBICIN HYDROCHLORIDE
     Indication: Breast cancer
     Dosage: UNK (ROUTE: INTRAVENOUS (NOT OTHERWISE SPECIFIED))
     Route: 042
  3. KADCYLA [Suspect]
     Active Substance: ADO-TRASTUZUMAB EMTANSINE
     Indication: Product used for unknown indication
     Dosage: UNK (DOSAGE FORM: POWDER FOR SOLUTION)
     Route: 065
  4. PERJETA [Suspect]
     Active Substance: PERTUZUMAB
     Indication: Breast cancer
     Dosage: PERJETA 14 ML VIAL - CONCENTRATE SOL; DOSAGE FORM: SOLUTION INTRAVENOUS; (ROUTE: INTRAVENOUS (NOT OT
     Route: 042
  5. TAXOL [Suspect]
     Active Substance: PACLITAXEL
     Indication: Breast cancer
     Dosage: DOSAGE FORM: SOLUTION INTRAVENOUS; (ROUTE: INTRAVENOUS (NOT OTHERWISE SPECIFIED)
     Route: 042
  6. TRASTUZUMAB [Suspect]
     Active Substance: TRASTUZUMAB
     Indication: Breast cancer
     Dosage: (ROUTE: INTRAVENOUS (NOT OTHERWISE SPECIFIED)
     Route: 042

REACTIONS (1)
  - Therapeutic response decreased [Not Recovered/Not Resolved]
